FAERS Safety Report 19757327 (Version 1)
Quarter: 2021Q3

REPORT INFORMATION
  Report Type: Spontaneous
  Country: DE (occurrence: DE)
  Receive Date: 20210827
  Receipt Date: 20210827
  Transmission Date: 20211014
  Serious: Yes (Hospitalization, Other)
  Sender: FDA-Public Use
  Company Number: NVSC2021DE190908

PATIENT
  Age: 61 Year
  Sex: Male
  Weight: 64 kg

DRUGS (50)
  1. FLUOROURACIL. [Suspect]
     Active Substance: FLUOROURACIL
     Dosage: 710 MG
     Route: 040
     Dates: start: 20200928
  2. FOLINIC ACID [Suspect]
     Active Substance: LEUCOVORIN
     Dosage: 730 MG
     Route: 065
     Dates: start: 20200817
  3. VECTIBIX [Suspect]
     Active Substance: PANITUMUMAB
     Dosage: 385 MG
     Route: 042
     Dates: start: 20200608
  4. VECTIBIX [Suspect]
     Active Substance: PANITUMUMAB
     Dosage: 425 MG
     Route: 042
     Dates: start: 20200706
  5. VECTIBIX [Suspect]
     Active Substance: PANITUMUMAB
     Dosage: 350 MG
     Route: 042
     Dates: start: 20201214
  6. FLUOROURACIL. [Suspect]
     Active Substance: FLUOROURACIL
     Dosage: 4440 MG
     Route: 042
     Dates: start: 20200803
  7. FLUOROURACIL. [Suspect]
     Active Substance: FLUOROURACIL
     Dosage: 4150 MG
     Route: 042
     Dates: start: 20201026
  8. FLUOROURACIL. [Suspect]
     Active Substance: FLUOROURACIL
     Dosage: 680 MG
     Route: 040
     Dates: start: 20201214
  9. FLUOROURACIL. [Suspect]
     Active Substance: FLUOROURACIL
     Dosage: 4250 MG
     Route: 042
     Dates: start: 20210317
  10. FLUOROURACIL. [Suspect]
     Active Substance: FLUOROURACIL
     Dosage: 710 MG
     Route: 040
     Dates: start: 20210317
  11. FLUOROURACIL. [Suspect]
     Active Substance: FLUOROURACIL
     Dosage: 720 MG
     Route: 040
     Dates: start: 20210706
  12. FOLINIC ACID [Suspect]
     Active Substance: LEUCOVORIN
     Dosage: 700 MG
     Route: 065
     Dates: start: 20210622
  13. FOLINIC ACID [Suspect]
     Active Substance: LEUCOVORIN
     Dosage: 50 MG
     Route: 065
     Dates: start: 20210804
  14. VECTIBIX [Suspect]
     Active Substance: PANITUMUMAB
     Dosage: 350 MG
     Route: 042
     Dates: start: 20210128
  15. FLUOROURACIL. [Suspect]
     Active Substance: FLUOROURACIL
     Dosage: 2125 MG
     Route: 042
     Dates: start: 20200608
  16. FLUOROURACIL. [Suspect]
     Active Substance: FLUOROURACIL
     Dosage: 2220 MG
     Route: 042
     Dates: start: 20200706
  17. FLUOROURACIL. [Suspect]
     Active Substance: FLUOROURACIL
     Dosage: 4370 MG
     Route: 042
     Dates: start: 20200817
  18. FLUOROURACIL. [Suspect]
     Active Substance: FLUOROURACIL
     Dosage: 690 MG
     Route: 040
     Dates: start: 20201026
  19. VECTIBIX [Suspect]
     Active Substance: PANITUMUMAB
     Dosage: 400 MG
     Route: 042
     Dates: start: 20200817
  20. VECTIBIX [Suspect]
     Active Substance: PANITUMUMAB
     Dosage: 385 MG
     Route: 042
     Dates: start: 20210317
  21. VECTIBIX [Suspect]
     Active Substance: PANITUMUMAB
     Dosage: 395 MG
     Route: 042
     Dates: start: 20210706
  22. FLUOROURACIL. [Suspect]
     Active Substance: FLUOROURACIL
     Indication: COLORECTAL CANCER METASTATIC
     Dosage: 2110 MG
     Route: 042
     Dates: start: 20200427
  23. FLUOROURACIL. [Suspect]
     Active Substance: FLUOROURACIL
     Dosage: 740 MG
     Route: 040
     Dates: start: 20200803
  24. FLUOROURACIL. [Suspect]
     Active Substance: FLUOROURACIL
     Dosage: 730 MG
     Route: 040
     Dates: start: 20200817
  25. FLUOROURACIL. [Suspect]
     Active Substance: FLUOROURACIL
     Dosage: 4045 MG
     Route: 042
     Dates: start: 20201214
  26. FLUOROURACIL. [Suspect]
     Active Substance: FLUOROURACIL
     Dosage: 4225 MG
     Route: 042
     Dates: start: 20210622
  27. FLUOROURACIL. [Suspect]
     Active Substance: FLUOROURACIL
     Dosage: 4320 MG
     Route: 042
     Dates: start: 20210706
  28. FLUOROURACIL. [Suspect]
     Active Substance: FLUOROURACIL
     Dosage: 4225 MG
     Route: 042
     Dates: start: 20201012
  29. FOLINIC ACID [Suspect]
     Active Substance: LEUCOVORIN
     Indication: COLORECTAL CANCER METASTATIC
     Dosage: 350 MG
     Route: 065
     Dates: start: 20200427
  30. FOLINIC ACID [Suspect]
     Active Substance: LEUCOVORIN
     Dosage: 365 MG
     Route: 065
     Dates: start: 20200706
  31. FOLINIC ACID [Suspect]
     Active Substance: LEUCOVORIN
     Dosage: 710 MG
     Route: 065
     Dates: start: 20200928
  32. VECTIBIX [Suspect]
     Active Substance: PANITUMUMAB
     Dosage: 390 MG
     Route: 042
     Dates: start: 20200928
  33. FLUOROURACIL. [Suspect]
     Active Substance: FLUOROURACIL
     Dosage: 4270 MG
     Route: 042
     Dates: start: 20200928
  34. FOLINIC ACID [Suspect]
     Active Substance: LEUCOVORIN
     Dosage: 690 MG
     Route: 065
     Dates: start: 20201026
  35. FOLINIC ACID [Suspect]
     Active Substance: LEUCOVORIN
     Dosage: 720 MG
     Route: 065
     Dates: start: 20210706
  36. VECTIBIX [Suspect]
     Active Substance: PANITUMUMAB
     Dosage: 375 MG
     Route: 042
     Dates: start: 20210622
  37. FLUOROURACIL. [Suspect]
     Active Substance: FLUOROURACIL
     Dosage: 700 MG
     Route: 040
     Dates: start: 20200427
  38. FLUOROURACIL. [Suspect]
     Active Substance: FLUOROURACIL
     Dosage: 700 MG
     Route: 040
     Dates: start: 20210622
  39. FOLINIC ACID [Suspect]
     Active Substance: LEUCOVORIN
     Dosage: 700 MG
     Route: 065
     Dates: start: 20201012
  40. FOLINIC ACID [Suspect]
     Active Substance: LEUCOVORIN
     Dosage: 680 MG
     Route: 065
     Dates: start: 20201214
  41. FOLINIC ACID [Suspect]
     Active Substance: LEUCOVORIN
     Dosage: 710 MG
     Route: 065
     Dates: start: 20210317
  42. VECTIBIX [Suspect]
     Active Substance: PANITUMUMAB
     Dosage: 380 MG
     Route: 042
     Dates: start: 20201012
  43. VECTIBIX [Suspect]
     Active Substance: PANITUMUMAB
     Dosage: 365 MG
     Route: 042
     Dates: start: 20201026
  44. FLUOROURACIL. [Suspect]
     Active Substance: FLUOROURACIL
     Dosage: 735 MG
     Route: 040
     Dates: start: 20200706
  45. FLUOROURACIL. [Suspect]
     Active Substance: FLUOROURACIL
     Dosage: 700 MG
     Route: 040
     Dates: start: 20201012
  46. OXALIPLATIN. [Suspect]
     Active Substance: OXALIPLATIN
     Indication: COLORECTAL CANCER METASTATIC
     Dosage: 150 MG
     Route: 065
     Dates: start: 20200427
  47. OXALIPLATIN. [Suspect]
     Active Substance: OXALIPLATIN
     Dosage: 155 MG
     Route: 065
     Dates: start: 20200720
  48. FOLINIC ACID [Suspect]
     Active Substance: LEUCOVORIN
     Dosage: 740 MG
     Route: 065
     Dates: start: 20200803
  49. VECTIBIX [Suspect]
     Active Substance: PANITUMUMAB
     Indication: COLORECTAL CANCER METASTATIC
     Dosage: 380 MG
     Route: 042
     Dates: start: 20200427
  50. VECTIBIX [Suspect]
     Active Substance: PANITUMUMAB
     Dosage: 365 MG
     Route: 042
     Dates: start: 20201230

REACTIONS (2)
  - Pulmonary embolism [Recovering/Resolving]
  - Mechanical ileus [Recovered/Resolved]

NARRATIVE: CASE EVENT DATE: 20210520
